FAERS Safety Report 5957859-6 (Version None)
Quarter: 2008Q4

REPORT INFORMATION
  Report Type: 
  Country: None (occurrence: None)
  Receive Date: 20081119
  Receipt Date: 20081107
  Transmission Date: 20090506
  Serious: Yes (Hospitalization)
  Sender: FDA-Public Use
  Company Number: US-ROCHE-570544

PATIENT
  Sex: Female

DRUGS (5)
  1. PEG-INTERFERON A-2A (RO 25-8310) [Suspect]
     Indication: HEPATITIS C
     Dosage: FORM: PREFILLED SYRINGE THERAPY INTERRUPTED FOR 2 WEEKS.
     Route: 065
     Dates: start: 20080312, end: 20080614
  2. PEG-INTERFERON A-2A (RO 25-8310) [Suspect]
     Dosage: THE PATIENT IS IN WEEK 33 OF TREATMENT.
     Route: 065
  3. RIBAVIRIN [Suspect]
     Indication: HEPATITIS C
     Dosage: THERAPY INTERRUPTED FOR 2 WEEKS
     Route: 065
     Dates: start: 20080312, end: 20080614
  4. RIBAVIRIN [Suspect]
     Route: 065
     Dates: start: 20080630
  5. RIBAVIRIN [Suspect]
     Dosage: DOSE REDUCED, THE PATIENT IS IN WEEK 33 OF TREATMENT.
     Route: 065

REACTIONS (4)
  - ALOPECIA [None]
  - LOSS OF CONSCIOUSNESS [None]
  - WEIGHT DECREASED [None]
  - WHITE BLOOD CELL COUNT DECREASED [None]
